FAERS Safety Report 21383101 (Version 1)
Quarter: 2022Q3

REPORT INFORMATION
  Report Type: Spontaneous
  Country: US (occurrence: US)
  Receive Date: 20220927
  Receipt Date: 20220927
  Transmission Date: 20221026
  Serious: No
  Sender: FDA-Public Use
  Company Number: US-SA-SAC20220923000249

PATIENT
  Age: 16 Year
  Sex: Male
  Weight: 66.3 kg

DRUGS (4)
  1. DUPIXENT [Suspect]
     Active Substance: DUPILUMAB
     Indication: Dermatitis atopic
     Dosage: 300 MG, QOW
     Route: 058
     Dates: start: 202208
  2. HYDROCORTISONE [Concomitant]
     Active Substance: HYDROCORTISONE
  3. LACOSAMIDE [Concomitant]
     Active Substance: LACOSAMIDE
  4. NAYZILAM [Concomitant]
     Active Substance: MIDAZOLAM

REACTIONS (3)
  - Eye allergy [Recovered/Resolved]
  - Eye pruritus [Recovered/Resolved]
  - Ocular hyperaemia [Recovered/Resolved]
